FAERS Safety Report 10132645 (Version 1)
Quarter: 2014Q2

REPORT INFORMATION
  Report Type: Spontaneous
  Country: US (occurrence: US)
  Receive Date: 20140428
  Receipt Date: 20140428
  Transmission Date: 20141212
  Serious: No
  Sender: FDA-Public Use
  Company Number: US-MALLINCKRODT-T201401329

PATIENT
  Age: 66 Year
  Sex: Female

DRUGS (4)
  1. HYDROCODONE/ACETAMINOPHEN [Suspect]
     Indication: PAIN
     Dosage: 7.5/325 MG, BID
     Route: 048
     Dates: start: 20140212
  2. HYDROCODONE BITARTRATE AND ACETAMINOPHEN [Suspect]
     Indication: PAIN
     Dosage: 7.5/325 MG, BID (QUALITEST)
     Route: 048
     Dates: start: 2014, end: 2014
  3. HYDROCODONE BITARTRATE AND ACETAMINOPHEN [Suspect]
     Dosage: 7.5/325 MG, BID (WATSON)
     Route: 048
     Dates: start: 2014, end: 2014
  4. CLONAZEPAM [Concomitant]
     Dosage: 2 MG, QD
     Route: 048

REACTIONS (4)
  - Cough [Not Recovered/Not Resolved]
  - Insomnia [Not Recovered/Not Resolved]
  - Hyperventilation [Not Recovered/Not Resolved]
  - Pruritus [Not Recovered/Not Resolved]
